FAERS Safety Report 25470906 (Version 1)
Quarter: 2025Q2

REPORT INFORMATION
  Report Type: Spontaneous
  Country: US (occurrence: US)
  Receive Date: 20250624
  Receipt Date: 20250624
  Transmission Date: 20250716
  Serious: Yes (Other)
  Sender: ALKEM
  Company Number: US-ALKEM LABORATORIES LIMITED-US-ALKEM-2025-06555

PATIENT
  Age: 70 Year
  Sex: Female

DRUGS (3)
  1. GABAPENTIN [Suspect]
     Active Substance: GABAPENTIN
     Indication: Back pain
     Route: 065
  2. Ayvakit (Avapritinib, Avapritinib) [Concomitant]
     Indication: Malignant connective tissue neoplasm
     Dosage: 200 MILLIGRAM, QD
     Route: 065
     Dates: start: 20231127
  3. Ayvakit (Avapritinib, Avapritinib) [Concomitant]
     Indication: Soft tissue sarcoma

REACTIONS (2)
  - Hallucination [Unknown]
  - Drug hypersensitivity [Unknown]
